FAERS Safety Report 4684283-9 (Version None)
Quarter: 2005Q2

REPORT INFORMATION
  Report Type: 
  Country: None (occurrence: None)
  Receive Date: 20050531
  Receipt Date: 20050422
  Transmission Date: 20051028
  Serious: Yes (Hospitalization)
  Sender: FDA-Public Use
  Company Number: US_0411107638

PATIENT
  Age: 47 Year
  Sex: Male
  Weight: 109 kg

DRUGS (7)
  1. ZYPREXA [Suspect]
     Dosage: 15 MG
     Dates: start: 20010101, end: 20030601
  2. OLANZAPINE/FLUOXETINE CAPSULE [Concomitant]
  3. ARIPIPRAZOLE [Concomitant]
  4. ZIPRASIDONE [Concomitant]
  5. DIVALPROEX SODIUM [Concomitant]
  6. LITHIUM [Concomitant]
  7. DEPAKOTE [Concomitant]

REACTIONS (3)
  - DIABETES MELLITUS [None]
  - HYPERGLYCAEMIA [None]
  - ORAL CANDIDIASIS [None]
